FAERS Safety Report 9153438 (Version 1)
Quarter: 2013Q1

REPORT INFORMATION
  Report Type: Spontaneous
  Country: US (occurrence: None)
  Receive Date: 20130204
  Receipt Date: 20130204
  Transmission Date: 20140127
  Serious: Yes (Other)
  Sender: FDA-Public Use
  Company Number: TPA2012A09645

PATIENT
  Age: 72 Year
  Sex: Male

DRUGS (10)
  1. ADENURIC (FEBUXOSTAT) [Suspect]
     Indication: PRODUCT USED FOR UNKNOWN INDICATION
     Route: 048
     Dates: start: 20121023, end: 20121112
  2. ATENOLOL (ATENOLOL) [Concomitant]
  3. PRAVASTATIN (PRAVASTATIN) [Concomitant]
  4. KARDEGIC (ACETYLSALICYLATE LYSINE) [Concomitant]
  5. ARANESP (DARBEPOETIN ALFA) [Concomitant]
  6. OMEPRAZOLE (OMEPRAZOLE) [Concomitant]
  7. KAYEALATE (SODIUM POLHSTYRENE SULFONATE) [Concomitant]
  8. AMLOR (AMLODIPINE BESILATE) [Concomitant]
  9. LASILIX (FUROSEMIDE) [Concomitant]
  10. HYPERIUM (RILMENIDINE PHOSPHATE) [Concomitant]

REACTIONS (1)
  - Skin exfoliation [None]
